FAERS Safety Report 5987056-X (Version None)
Quarter: 2008Q4

REPORT INFORMATION
  Report Type: 
  Country: None (occurrence: None)
  Receive Date: 20081209
  Receipt Date: 20071012
  Transmission Date: 20090506
  Serious: No
  Sender: FDA-Public Use
  Company Number: A0687569A

PATIENT
  Age: 49 Year
  Sex: Female

DRUGS (4)
  1. AVANDAMET [Suspect]
     Dosage: 1TAB TWICE PER DAY
     Route: 048
     Dates: start: 20070601
  2. GLUCOTROL XL [Concomitant]
  3. ACCUPRIL [Concomitant]
  4. INSULIN [Concomitant]

REACTIONS (1)
  - CHEST PAIN [None]
